FAERS Safety Report 7129399-2 (Version None)
Quarter: 2010Q4

REPORT INFORMATION
  Report Type: 
  Country: None (occurrence: None)
  Receive Date: 20101130
  Receipt Date: 20101117
  Transmission Date: 20110411
  Serious: Yes (Other)
  Sender: FDA-Public Use
  Company Number: US-CELGENEUS-163-21880-10052578

PATIENT
  Sex: Female

DRUGS (5)
  1. REVLIMID [Suspect]
     Route: 048
     Dates: start: 20071123
  2. REVLIMID [Suspect]
     Route: 048
     Dates: start: 20080301
  3. REVLIMID [Suspect]
     Route: 048
     Dates: start: 20090301
  4. REVLIMID [Suspect]
     Route: 048
     Dates: start: 20100317
  5. DEXAMETHASONE [Concomitant]
     Indication: MULTIPLE MYELOMA
     Route: 065
     Dates: start: 20100317

REACTIONS (7)
  - CHEST PAIN [None]
  - CONTUSION [None]
  - DIARRHOEA [None]
  - DRY SKIN [None]
  - EYE OPERATION [None]
  - MUSCLE SPASMS [None]
  - PRURITUS [None]
